FAERS Safety Report 16080144 (Version 1)
Quarter: 2019Q1

REPORT INFORMATION
  Report Type: Spontaneous
  Country: NL (occurrence: NL)
  Receive Date: 20190315
  Receipt Date: 20190315
  Transmission Date: 20190418
  Serious: Yes (Death, Other)
  Sender: FDA-Public Use
  Company Number: PHHY2019NL058855

PATIENT
  Age: 69 Year
  Sex: Female

DRUGS (1)
  1. RITALINE [Suspect]
     Active Substance: METHYLPHENIDATE HYDROCHLORIDE
     Indication: PRODUCT USED FOR UNKNOWN INDICATION
     Dosage: UNK
     Route: 065

REACTIONS (9)
  - Off label use [Unknown]
  - Sleep disorder [Unknown]
  - Terminal state [Unknown]
  - Fluid intake reduced [Unknown]
  - Gastric haemorrhage [Unknown]
  - General physical health deterioration [Unknown]
  - Lung neoplasm malignant [Fatal]
  - Vomiting [Unknown]
  - Nausea [Unknown]
